FAERS Safety Report 23729544 (Version 2)
Quarter: 2024Q2

REPORT INFORMATION
  Report Type: Report from Study
  Country: CA (occurrence: CA)
  Receive Date: 20240410
  Receipt Date: 20240625
  Transmission Date: 20240716
  Serious: Yes (Other)
  Sender: FDA-Public Use
  Company Number: CA-MTPC-MTDA2024-0007230

PATIENT
  Age: 67 Year
  Sex: Female

DRUGS (11)
  1. RADICAVA ORS [Suspect]
     Active Substance: EDARAVONE
     Indication: Amyotrophic lateral sclerosis
     Dosage: UNK FOR 10 DAYS OUT OF 14 ON, 14 DAYS OFF
     Route: 048
     Dates: start: 20240329
  2. RADICAVA ORS [Suspect]
     Active Substance: EDARAVONE
     Indication: Amyotrophic lateral sclerosis
     Dosage: UNK FOR 10 DAYS OUT OF 14 ON, 14 DAYS OFF
     Route: 048
     Dates: start: 20240329
  3. SODIUM PHENYLBUTYRATE\TAURURSODIOL [Concomitant]
     Active Substance: SODIUM PHENYLBUTYRATE\TAURURSODIOL
     Indication: Product used for unknown indication
     Dosage: 2 PACKETS DAILY
     Route: 048
     Dates: start: 20230309
  4. ASPIRIN [Concomitant]
     Active Substance: ASPIRIN
     Indication: Product used for unknown indication
     Dosage: 81 MILLIGRAM, QD
     Route: 048
     Dates: start: 20231212
  5. CARBAMAZEPINE [Concomitant]
     Active Substance: CARBAMAZEPINE
     Indication: Product used for unknown indication
     Dosage: 200 MILLIGRAM, TID
     Route: 048
     Dates: start: 20231213
  6. ESTRONE [Concomitant]
     Active Substance: ESTRONE
     Indication: Product used for unknown indication
     Dosage: 1 MILLIGRAM PER GRAM, QD
     Route: 048
     Dates: start: 20230710
  7. LORAZEPAM [Concomitant]
     Active Substance: LORAZEPAM
     Indication: Product used for unknown indication
     Dosage: 1 MILLIGRAM, QD
     Route: 048
     Dates: start: 20231124
  8. MONOFERRIC [Concomitant]
     Active Substance: FERRIC DERISOMALTOSE
     Indication: Product used for unknown indication
     Dosage: 100 MG/ML, QD
     Route: 048
     Dates: start: 20231124
  9. NITROFURANTOIN [Concomitant]
     Active Substance: NITROFURANTOIN
     Indication: Product used for unknown indication
     Dosage: 100 MILLIGRAM, QD
     Route: 048
     Dates: start: 20231017
  10. PANTOPRAZOLE [Concomitant]
     Active Substance: PANTOPRAZOLE
     Indication: Product used for unknown indication
     Dosage: 40 MILLIGRAM, BID
     Route: 048
     Dates: start: 20231213
  11. RILUTEK [Concomitant]
     Active Substance: RILUZOLE
     Indication: Product used for unknown indication
     Dosage: 50 MILLIGRAM, BID
     Route: 048
     Dates: start: 20240214

REACTIONS (2)
  - Syncope [Unknown]
  - Nausea [Unknown]

NARRATIVE: CASE EVENT DATE: 20240331
